FAERS Safety Report 22958038 (Version 2)
Quarter: 2023Q4

REPORT INFORMATION
  Report Type: Spontaneous
  Country: US (occurrence: US)
  Receive Date: 20230919
  Receipt Date: 20231220
  Transmission Date: 20240110
  Serious: No
  Sender: FDA-Public Use
  Company Number: US-PROVENTION BIO, INC.-US-PRAG-23-00070

PATIENT
  Age: 41 Year
  Sex: Female

DRUGS (7)
  1. TZIELD [Suspect]
     Active Substance: TEPLIZUMAB-MZWV
     Indication: Diabetes prophylaxis
     Dosage: 111.2 MICROGRAM, SINGLE
     Route: 042
     Dates: start: 20230814, end: 20230814
  2. TZIELD [Suspect]
     Active Substance: TEPLIZUMAB-MZWV
     Dosage: 213.8 MICROGRAM, SINGLE
     Route: 042
     Dates: start: 20230815, end: 20230815
  3. TZIELD [Suspect]
     Active Substance: TEPLIZUMAB-MZWV
     Dosage: 427.5 MICROGRAM, SINGLE
     Route: 042
     Dates: start: 20230816, end: 20230816
  4. TZIELD [Suspect]
     Active Substance: TEPLIZUMAB-MZWV
     Dosage: 855 MICROGRAM, SINGLE
     Route: 042
     Dates: start: 20230817, end: 20230817
  5. TZIELD [Suspect]
     Active Substance: TEPLIZUMAB-MZWV
     Dosage: 1761.3 MICROGRAM, QD
     Route: 042
     Dates: start: 20230818, end: 20230819
  6. TZIELD [Suspect]
     Active Substance: TEPLIZUMAB-MZWV
     Dosage: UNK
     Route: 042
     Dates: start: 20230824, end: 20230831
  7. BUDESONIDE [Concomitant]
     Active Substance: BUDESONIDE
     Indication: Product used for unknown indication
     Dosage: 3 MILLIGRAM, QD
     Route: 048

REACTIONS (3)
  - Eyelids pruritus [Recovered/Resolved]
  - Eyelid rash [Recovered/Resolved]
  - Periorbital oedema [Recovered/Resolved]

NARRATIVE: CASE EVENT DATE: 20230819
